FAERS Safety Report 6003671-1 (Version None)
Quarter: 2008Q4

REPORT INFORMATION
  Report Type: 
  Country: None (occurrence: None)
  Receive Date: 20081216
  Receipt Date: 20080730
  Transmission Date: 20090506
  Serious: No
  Sender: FDA-Public Use
  Company Number: US-AMGEN-KDL298402

PATIENT
  Age: 82 Year
  Sex: Male

DRUGS (3)
  1. PROCRIT [Suspect]
     Indication: RENAL FAILURE CHRONIC
     Dates: start: 20070101, end: 20080618
  2. ARANESP [Suspect]
  3. CARDIAC MEDICATION NOS [Concomitant]

REACTIONS (1)
  - PRURITUS [None]
